FAERS Safety Report 18668746 (Version 1)
Quarter: 2020Q4

REPORT INFORMATION
  Report Type: Spontaneous
  Country: US (occurrence: US)
  Receive Date: 20201228
  Receipt Date: 20201228
  Transmission Date: 20210114
  Serious: No
  Sender: FDA-Public Use
  Company Number: US-SA-2020SA371316

PATIENT

DRUGS (1)
  1. DUPIXENT [Suspect]
     Active Substance: DUPILUMAB
     Dosage: 300 MG, QOW
     Route: 058
     Dates: start: 20191223

REACTIONS (7)
  - Erythema [Unknown]
  - Rash pruritic [Unknown]
  - Pain [Unknown]
  - Eczema asteatotic [Unknown]
  - Injection site pain [Unknown]
  - Injection site swelling [Unknown]
  - Condition aggravated [Unknown]
